FAERS Safety Report 5831564-9 (Version None)
Quarter: 2008Q3

REPORT INFORMATION
  Report Type: 
  Country: None (occurrence: None)
  Receive Date: 20080801
  Receipt Date: 20080722
  Transmission Date: 20090109
  Serious: Yes (Hospitalization, Other)
  Sender: FDA-Public Use
  Company Number: DE-PFIZER INC-2008061955

PATIENT
  Sex: Female

DRUGS (4)
  1. ATARAX [Suspect]
     Dosage: DAILY DOSE:50MG
     Route: 048
     Dates: start: 20080630, end: 20080630
  2. ARIPIPRAZOLE [Suspect]
     Dosage: TEXT:30-50 MG
     Route: 048
     Dates: start: 20080630, end: 20080630
  3. PARACETAMOL [Suspect]
     Dosage: DAILY DOSE:500MG
     Route: 048
     Dates: start: 20080630, end: 20080630
  4. OLANZAPINE [Suspect]
     Dosage: DAILY DOSE:50MG
     Route: 048
     Dates: start: 20080630, end: 20080630

REACTIONS (2)
  - AGITATION [None]
  - SUICIDE ATTEMPT [None]
